FAERS Safety Report 25107403 (Version 1)
Quarter: 2025Q1

REPORT INFORMATION
  Report Type: Spontaneous
  Country: US (occurrence: US)
  Receive Date: 20250321
  Receipt Date: 20250321
  Transmission Date: 20250409
  Serious: Yes (Hospitalization, Other)
  Sender: MERCK SHARP & DOHME LLC
  Company Number: US-009507513-2266285

PATIENT
  Age: 62 Year
  Sex: Male

DRUGS (11)
  1. PEMBROLIZUMAB [Suspect]
     Active Substance: PEMBROLIZUMAB
     Indication: Metastatic malignant melanoma
     Route: 041
     Dates: start: 201704, end: 201803
  2. HUMIRA [Suspect]
     Active Substance: ADALIMUMAB
     Indication: Autoimmune arthritis
     Route: 058
     Dates: start: 201805
  3. HUMIRA [Suspect]
     Active Substance: ADALIMUMAB
     Indication: Autoimmune arthritis
     Route: 058
     Dates: start: 20180901, end: 201811
  4. MODERNA COVID-19 VACCINE [Suspect]
     Active Substance: ELASOMERAN
     Indication: Prophylaxis
     Dates: start: 202101
  5. METHOTREXATE [Suspect]
     Active Substance: METHOTREXATE
  6. ENBREL [Suspect]
     Active Substance: ETANERCEPT
  7. MOTRIN [Suspect]
     Active Substance: IBUPROFEN
  8. SIMPONI [Suspect]
     Active Substance: GOLIMUMAB
     Route: 058
  9. PREDNISONE [Suspect]
     Active Substance: PREDNISONE
     Indication: Autoimmune arthritis
  10. REMICADE [Suspect]
     Active Substance: INFLIXIMAB
     Dates: start: 2017, end: 2020
  11. FOSAMAX [Suspect]
     Active Substance: ALENDRONATE SODIUM
     Indication: Osteoporosis
     Route: 048
     Dates: start: 20180815, end: 2022

REACTIONS (51)
  - Autoimmune arthritis [Recovered/Resolved]
  - Osteoporosis [Not Recovered/Not Resolved]
  - Pituitary-dependent Cushing^s syndrome [Unknown]
  - Hypopituitarism [Unknown]
  - Adrenal insufficiency [Unknown]
  - Hypersensitivity [Unknown]
  - Kyphosis [Unknown]
  - Diastasis recti abdominis [Unknown]
  - Upper respiratory tract infection [Recovered/Resolved]
  - Upper respiratory tract infection [Recovered/Resolved]
  - Bronchitis [Recovered/Resolved]
  - Anaphylactic reaction [Unknown]
  - Vaccination site pain [Recovered/Resolved]
  - Vaccination site erythema [Recovered/Resolved]
  - Vaccination site swelling [Recovered/Resolved]
  - Chills [Recovered/Resolved]
  - Pyrexia [Recovered/Resolved]
  - Herpes zoster [Unknown]
  - Testicular disorder [Unknown]
  - Umbilical hernia [Unknown]
  - Quadriparesis [Unknown]
  - Pneumonia parainfluenzae viral [Unknown]
  - Rib fracture [Unknown]
  - Lymphadenopathy [Unknown]
  - COVID-19 [Recovered/Resolved]
  - Intestinal obstruction [Unknown]
  - Sepsis [Unknown]
  - Ecchymosis [Not Recovered/Not Resolved]
  - Haemorrhage [Unknown]
  - Vitiligo [Unknown]
  - Heat stroke [Unknown]
  - COVID-19 pneumonia [Unknown]
  - Respiratory distress [Unknown]
  - Keratoacanthoma [Unknown]
  - Tooth fracture [Unknown]
  - Benign prostatic hyperplasia [Unknown]
  - Drug hypersensitivity [Recovered/Resolved]
  - Fatigue [Unknown]
  - Arthralgia [Unknown]
  - Myalgia [Unknown]
  - Autonomic neuropathy [Unknown]
  - Wisdom teeth removal [Unknown]
  - Hydronephrosis [Unknown]
  - Gait disturbance [Unknown]
  - Apnoea [Recovered/Resolved]
  - Arthralgia [Unknown]
  - Folate deficiency [Unknown]
  - Impaired gastric emptying [Unknown]
  - Neurogenic bowel [Unknown]
  - Drug ineffective [Unknown]
  - Gastrointestinal microorganism overgrowth [Unknown]

NARRATIVE: CASE EVENT DATE: 20171201
